FAERS Safety Report 23717748 (Version 1)
Quarter: 2024Q2

REPORT INFORMATION
  Report Type: Spontaneous
  Country: CA (occurrence: CA)
  Receive Date: 20240408
  Receipt Date: 20240408
  Transmission Date: 20240716
  Serious: Yes (Other)
  Sender: FDA-Public Use
  Company Number: CA-STRIDES ARCOLAB LIMITED-2024SP004001

PATIENT
  Sex: Female

DRUGS (15)
  1. ROSUVASTATIN [Suspect]
     Active Substance: ROSUVASTATIN
     Indication: Type IIa hyperlipidaemia
     Dosage: UNK (RECEIVED UP TO 40MG DAILY)
     Route: 065
     Dates: start: 200007
  2. ROSUVASTATIN [Suspect]
     Active Substance: ROSUVASTATIN
     Dosage: UNK (DOSE REDUCED)
     Route: 065
  3. ATORVASTATIN [Suspect]
     Active Substance: ATORVASTATIN
     Indication: Type IIa hyperlipidaemia
     Dosage: UNK (RECEIVED AT HIGH INTENSITY UP TO 80MG DAILY)
     Route: 065
     Dates: start: 200007
  4. ATORVASTATIN [Suspect]
     Active Substance: ATORVASTATIN
     Dosage: UNK (DOSE REDUCED)
     Route: 065
  5. EZETIMIBE [Suspect]
     Active Substance: EZETIMIBE
     Indication: Type IIa hyperlipidaemia
     Dosage: UNK, QD; UNK (RECEIVED UP TO 10MG DAILY)
     Route: 065
     Dates: start: 200007
  6. EZETIMIBE [Suspect]
     Active Substance: EZETIMIBE
     Dosage: UNK (DOSE REDUCED)
     Route: 065
  7. LOMITAPIDE [Suspect]
     Active Substance: LOMITAPIDE
     Indication: Type IIa hyperlipidaemia
     Dosage: 5 MILLIGRAM
     Route: 065
     Dates: start: 200911
  8. LOMITAPIDE [Suspect]
     Active Substance: LOMITAPIDE
     Dosage: 20 MILLIGRAM (DOSE INCREASED, OVER THE NEXT YEAR)
     Route: 065
  9. LOMITAPIDE [Suspect]
     Active Substance: LOMITAPIDE
     Dosage: UNK (DOSE REDUCED)
     Route: 065
     Dates: start: 201302
  10. LOMITAPIDE [Suspect]
     Active Substance: LOMITAPIDE
     Dosage: UNK (DOSE REDUCED)
     Route: 065
     Dates: start: 201403
  11. LOMITAPIDE [Suspect]
     Active Substance: LOMITAPIDE
     Dosage: UNK (DOSE REDUCED)
     Route: 065
     Dates: start: 201911
  12. LOMITAPIDE [Suspect]
     Active Substance: LOMITAPIDE
     Dosage: UNK (DOSE REDUCED)
     Route: 065
  13. EVINACUMAB [Suspect]
     Active Substance: EVINACUMAB
     Indication: Type IIa hyperlipidaemia
     Dosage: UNK RECEIVED AT 250-450MG)
     Route: 058
     Dates: start: 200911
  14. EVINACUMAB [Suspect]
     Active Substance: EVINACUMAB
     Dosage: 15 MILLIGRAM/KILOGRAM
     Route: 042
  15. EVINACUMAB [Suspect]
     Active Substance: EVINACUMAB
     Dosage: UNK (DOSE REDUCED)
     Route: 065

REACTIONS (1)
  - Hepatic steatosis [Recovered/Resolved]
